FAERS Safety Report 4764990-X (Version None)
Quarter: 2005Q3

REPORT INFORMATION
  Report Type: 
  Country: None (occurrence: None)
  Receive Date: 20050907
  Receipt Date: 20050830
  Transmission Date: 20060218
  Serious: Yes (Other)
  Sender: FDA-Public Use
  Company Number: 163-20785-05070208

PATIENT
  Age: 62 Year
  Sex: Male

DRUGS (4)
  1. THALOMID [Suspect]
     Indication: MYELODYSPLASTIC SYNDROME
     Dosage: 200 MG, QD, ORAL
     Route: 048
     Dates: start: 20040201
  2. LASIX [Concomitant]
  3. KCL (POTASSIUM CHLORIDE) [Concomitant]
  4. LORTAB [Concomitant]

REACTIONS (6)
  - DEAFNESS BILATERAL [None]
  - DRY SKIN [None]
  - HYPOAESTHESIA [None]
  - NEPHROLITHIASIS [None]
  - OEDEMA PERIPHERAL [None]
  - SKIN EXFOLIATION [None]
